FAERS Safety Report 14954451 (Version 1)
Quarter: 2018Q2

REPORT INFORMATION
  Report Type: Spontaneous
  Country: IE (occurrence: IE)
  Receive Date: 20180530
  Receipt Date: 20180530
  Transmission Date: 20180711
  Serious: Yes (Hospitalization)
  Sender: FDA-Public Use
  Company Number: IE-IPSEN BIOPHARMACEUTICALS, INC.-2018-07885

PATIENT

DRUGS (6)
  1. INCRELEX [Suspect]
     Active Substance: MECASERMIN
     Indication: OFF LABEL USE
  2. ASA [Concomitant]
     Active Substance: ASPIRIN
  3. CLOPIDOGREL [Concomitant]
     Active Substance: CLOPIDOGREL BISULFATE
  4. TICAGRELOR. [Concomitant]
     Active Substance: TICAGRELOR
  5. INCRELEX [Suspect]
     Active Substance: MECASERMIN
     Indication: ARTERIAL THERAPEUTIC PROCEDURE
     Route: 013
  6. PRASUGREL. [Concomitant]
     Active Substance: PRASUGREL

REACTIONS (2)
  - Ventricular tachycardia [Unknown]
  - Off label use [Unknown]
